FAERS Safety Report 9520566 (Version 2)
Quarter: 2013Q3

REPORT INFORMATION
  Report Type: Spontaneous
  Country: US (occurrence: US)
  Receive Date: 20130913
  Receipt Date: 20130923
  Transmission Date: 20140515
  Serious: Yes (Hospitalization)
  Sender: FDA-Public Use
  Company Number: US-BIOGENIDEC-2013BI085077

PATIENT
  Age: 76 Year
  Sex: Female

DRUGS (1)
  1. AVONEX [Suspect]
     Indication: MULTIPLE SCLEROSIS
     Route: 030
     Dates: start: 19980410

REACTIONS (4)
  - Thrombosis [Recovered/Resolved]
  - Gait disturbance [Not Recovered/Not Resolved]
  - Post-traumatic headache [Recovered/Resolved]
  - Head injury [Recovered/Resolved]
